FAERS Safety Report 16952944 (Version 1)
Quarter: 2019Q4

REPORT INFORMATION
  Report Type: Spontaneous
  Country: FR (occurrence: FR)
  Receive Date: 20191023
  Receipt Date: 20191023
  Transmission Date: 20200122
  Serious: Yes (Hospitalization)
  Sender: FDA-Public Use
  Company Number: NVSC2019FR013236

PATIENT
  Sex: Female

DRUGS (2)
  1. AZOPT [Suspect]
     Active Substance: BRINZOLAMIDE
     Indication: GLAUCOMA
     Dosage: 3 OT, QD (3 INSTILLATIONS PER DAY)
     Route: 047
     Dates: start: 2006
  2. TRAVATAN [Suspect]
     Active Substance: TRAVOPROST
     Indication: GLAUCOMA
     Dosage: 1 OT, QD (1 INSTILLATION PER DAY)
     Route: 047
     Dates: start: 2006

REACTIONS (2)
  - Heart rate irregular [Not Recovered/Not Resolved]
  - Vomiting [Unknown]
